FAERS Safety Report 16406081 (Version 1)
Quarter: 2019Q2

REPORT INFORMATION
  Report Type: Spontaneous
  Country: US (occurrence: US)
  Receive Date: 20190607
  Receipt Date: 20190607
  Transmission Date: 20190711
  Serious: No
  Sender: FDA-Public Use
  Company Number: US-ALLERGAN-1857129US

PATIENT
  Age: 15 Year

DRUGS (2)
  1. VIBERZI [Suspect]
     Active Substance: ELUXADOLINE
     Indication: DIARRHOEA
     Dosage: 75 MG, QD
     Route: 065
     Dates: start: 2018
  2. VIBERZI [Suspect]
     Active Substance: ELUXADOLINE
     Indication: ABDOMINAL PAIN UPPER

REACTIONS (1)
  - Off label use [Unknown]
